FAERS Safety Report 18572264 (Version 2)
Quarter: 2020Q4

REPORT INFORMATION
  Report Type: Other
  Country: US (occurrence: US)
  Receive Date: 20201203
  Receipt Date: 20201230
  Transmission Date: 20210114
  Serious: Yes (Death)
  Sender: FDA-Public Use
  Company Number: US-ROCHE-2725309

PATIENT
  Age: 74 Year
  Sex: Male

DRUGS (14)
  1. TECENTRIQ [Suspect]
     Active Substance: ATEZOLIZUMAB
     Indication: PLASMA CELL MYELOMA
  2. METOLAZONE. [Concomitant]
     Active Substance: METOLAZONE
     Route: 048
     Dates: start: 20201018
  3. PROMETHAZINE [Concomitant]
     Active Substance: PROMETHAZINE HYDROCHLORIDE
     Dates: start: 20190806
  4. FUROSEMIDE. [Concomitant]
     Active Substance: FUROSEMIDE
     Route: 048
     Dates: start: 20191018
  5. VITAMIN D3 [Concomitant]
     Active Substance: CHOLECALCIFEROL
     Dosage: 2000 UNIT
     Dates: start: 20201018
  6. AVASTIN [Suspect]
     Active Substance: BEVACIZUMAB
     Indication: PLASMA CELL MYELOMA
     Dosage: INFUSE 1350MG INTRAVENOUSLY EVERY 21 DAY(S) 400 MG VIAL
     Route: 042
  7. AVASTIN [Suspect]
     Active Substance: BEVACIZUMAB
     Indication: HEPATOCELLULAR CARCINOMA
     Dosage: INFUSE 1350 MG INTRAVENOUSLY EVERY 21 DAY(S), 100 MG VIAL
     Route: 042
     Dates: start: 20200802
  8. CARVEDILOL. [Concomitant]
     Active Substance: CARVEDILOL
     Dates: start: 20200724
  9. FERROUS SULFATE. [Concomitant]
     Active Substance: FERROUS SULFATE
     Route: 048
  10. QUETIAPINE. [Concomitant]
     Active Substance: QUETIAPINE
     Dates: start: 20201018
  11. POTASSIUM [Concomitant]
     Active Substance: POTASSIUM
     Dates: start: 20191018
  12. TECENTRIQ [Suspect]
     Active Substance: ATEZOLIZUMAB
     Indication: HEPATOCELLULAR CARCINOMA
     Dosage: INFUSE 1200MG INTRAVENOUSLY EVERY 21 DAY(S)
     Route: 042
     Dates: start: 20200802
  13. FLUOXETINE [Concomitant]
     Active Substance: FLUOXETINE HYDROCHLORIDE
     Route: 048
  14. MELATONIN [Concomitant]
     Active Substance: MELATONIN
     Route: 048
     Dates: start: 20191018

REACTIONS (1)
  - Death [Fatal]

NARRATIVE: CASE EVENT DATE: 20201124
